FAERS Safety Report 25596307 (Version 1)
Quarter: 2025Q3

REPORT INFORMATION
  Report Type: Spontaneous
  Country: JP (occurrence: JP)
  Receive Date: 20250723
  Receipt Date: 20250723
  Transmission Date: 20251021
  Serious: Yes (Other)
  Sender: ALEXION PHARMACEUTICALS
  Company Number: JP-ASTRAZENECA-202507JPN017753JP

PATIENT
  Age: 62 Year
  Sex: Male

DRUGS (1)
  1. IMFINZI [Suspect]
     Active Substance: DURVALUMAB
     Indication: Lung neoplasm malignant
     Route: 065

REACTIONS (3)
  - Malignant neoplasm progression [Unknown]
  - Lung carcinoma cell type unspecified recurrent [Unknown]
  - Off label use [Unknown]
